FAERS Safety Report 21739475 (Version 1)
Quarter: 2022Q4

REPORT INFORMATION
  Report Type: Spontaneous
  Country: US (occurrence: None)
  Receive Date: 20221215
  Receipt Date: 20221215
  Transmission Date: 20230113
  Serious: No
  Sender: FDA-Public Use
  Company Number: None

PATIENT
  Sex: Female

DRUGS (1)
  1. TALTZ [Suspect]
     Active Substance: IXEKIZUMAB
     Indication: Polyarthritis
     Dosage: 80MG EVERY 4 WEEKS SUBCUTANEOUSLY?
     Route: 058
     Dates: start: 20221208

REACTIONS (3)
  - Pruritus [None]
  - Burning sensation [None]
  - Condition aggravated [None]
